FAERS Safety Report 23174154 (Version 1)
Quarter: 2023Q4

REPORT INFORMATION
  Report Type: Spontaneous
  Country: US (occurrence: None)
  Receive Date: 20231112
  Receipt Date: 20231112
  Transmission Date: 20240109
  Serious: Yes (Other)
  Sender: FDA-Public Use
  Company Number: US-ENDO-CASE-0040797

PATIENT
  Sex: Female

DRUGS (1)
  1. RANITIDINE HYDROCHLORIDE [Suspect]
     Active Substance: RANITIDINE HYDROCHLORIDE

REACTIONS (6)
  - Nausea [Unknown]
  - Vomiting [Unknown]
  - Lethargy [Unknown]
  - Decreased appetite [Unknown]
  - Anxiety [Unknown]
  - Insomnia [Unknown]
